FAERS Safety Report 18198597 (Version 3)
Quarter: 2025Q2

REPORT INFORMATION
  Report Type: Spontaneous
  Country: US (occurrence: US)
  Receive Date: 20200826
  Receipt Date: 20250417
  Transmission Date: 20250717
  Serious: Yes (Other)
  Sender: NOVARTIS
  Company Number: US-NOVARTISPH-PHHY2019US197681

PATIENT
  Age: 8 Year
  Sex: Male

DRUGS (1)
  1. TRAMETINIB [Suspect]
     Active Substance: TRAMETINIB
     Indication: Glioma
     Dosage: 0.025 MG/KG, QD
     Route: 065

REACTIONS (6)
  - Glioma [Unknown]
  - Visual acuity reduced [Unknown]
  - Malignant neoplasm progression [Unknown]
  - Skin toxicity [Unknown]
  - Therapy partial responder [Unknown]
  - Product use in unapproved indication [Unknown]
